FAERS Safety Report 6565979-0 (Version None)
Quarter: 2010Q1

REPORT INFORMATION
  Report Type: 
  Country: None (occurrence: None)
  Receive Date: 20100201
  Receipt Date: 20100119
  Transmission Date: 20100710
  Serious: Yes (Other)
  Sender: FDA-Public Use
  Company Number: US-ALLERGAN-1000699US

PATIENT
  Sex: Male

DRUGS (1)
  1. ACUVAIL [Suspect]
     Indication: DRUG USE FOR UNKNOWN INDICATION
     Dosage: 1 GTT, BID

REACTIONS (1)
  - ULCERATIVE KERATITIS [None]
